FAERS Safety Report 6016734-1 (Version None)
Quarter: 2008Q4

REPORT INFORMATION
  Report Type: 
  Country: None (occurrence: None)
  Receive Date: 20081222
  Receipt Date: 20081216
  Transmission Date: 20090506
  Serious: Yes (Hospitalization)
  Sender: FDA-Public Use
  Company Number: US-B.I. PHARMACEUTICALS,INC./RIDGEFIELD-2008-BP-18928BP

PATIENT
  Sex: Female

DRUGS (14)
  1. SPIRIVA [Suspect]
     Indication: CHRONIC OBSTRUCTIVE PULMONARY DISEASE
     Dosage: 18MCG
     Route: 055
     Dates: start: 20081001
  2. PLAVIX [Concomitant]
     Indication: CEREBROVASCULAR ACCIDENT
  3. PREDNISONE TAB [Concomitant]
     Indication: ASTHMA
  4. SINGULAIR [Concomitant]
     Indication: ASTHMA
  5. ALTACE [Concomitant]
  6. LIPITOR [Concomitant]
     Indication: BLOOD CHOLESTEROL INCREASED
  7. NORVASC [Concomitant]
     Indication: HYPERTENSION
  8. BUSPIRONE HCL [Concomitant]
     Indication: ANXIETY
  9. ALBUTEROL [Concomitant]
  10. FORADIL [Concomitant]
     Indication: ASTHMA
  11. FLOVENT [Concomitant]
     Indication: ASTHMA
  12. ASTERLIN NASAL SPRAY [Concomitant]
     Indication: HYPERSENSITIVITY
  13. FLUTICASONE PROPANIATE NASAL SPRAY [Concomitant]
     Indication: HYPERSENSITIVITY
  14. BONIVA [Concomitant]
     Indication: OSTEOPOROSIS

REACTIONS (3)
  - DYSPHAGIA [None]
  - MYOCARDIAL INFARCTION [None]
  - OROPHARYNGEAL PAIN [None]
